FAERS Safety Report 16624887 (Version 3)
Quarter: 2019Q4

REPORT INFORMATION
  Report Type: Spontaneous
  Country: GB (occurrence: GB)
  Receive Date: 20190724
  Receipt Date: 20191128
  Transmission Date: 20200122
  Serious: Yes (Other)
  Sender: FDA-Public Use
  Company Number: GB-JAZZ-2019-GB-010107

PATIENT
  Age: 56 Year
  Sex: Male

DRUGS (9)
  1. ONDANSETRON [Concomitant]
     Active Substance: ONDANSETRON
     Dosage: 8 MG, QD
     Route: 042
     Dates: start: 20190208, end: 20190208
  2. VYXEOS [Suspect]
     Active Substance: CYTARABINE\DAUNORUBICIN
     Dosage: INDUCTION 1 - 103.4MG
     Route: 042
     Dates: start: 20190208, end: 20190208
  3. DEXAMETHASONE. [Concomitant]
     Active Substance: DEXAMETHASONE
     Dosage: 8 MG, QD
     Route: 042
     Dates: start: 20190211, end: 20190211
  4. ONDANSETRON [Concomitant]
     Active Substance: ONDANSETRON
     Dosage: 8 MG, QD
     Route: 042
     Dates: start: 20190211, end: 20190211
  5. VYXEOS [Suspect]
     Active Substance: CYTARABINE\DAUNORUBICIN
     Dosage: INDUCTION 1 - 103.4MG
     Route: 042
     Dates: start: 20190211, end: 20190211
  6. VYXEOS [Suspect]
     Active Substance: CYTARABINE\DAUNORUBICIN
     Indication: ACUTE MYELOID LEUKAEMIA
     Dosage: INDUCTION 1 - 103.4MG
     Route: 042
     Dates: start: 20190206, end: 20190206
  7. DEXAMETHASONE. [Concomitant]
     Active Substance: DEXAMETHASONE
     Dosage: 8 MG, QD
     Route: 042
     Dates: start: 20190208, end: 20190208
  8. DEXAMETHASONE. [Concomitant]
     Active Substance: DEXAMETHASONE
     Indication: PRODUCT USED FOR UNKNOWN INDICATION
     Dosage: 8MG, QD
     Route: 042
     Dates: start: 20190206, end: 20190206
  9. ONDANSETRON [Concomitant]
     Active Substance: ONDANSETRON
     Indication: PRODUCT USED FOR UNKNOWN INDICATION
     Dosage: 8MG, QD
     Route: 042
     Dates: start: 20190206, end: 20190206

REACTIONS (3)
  - Central nervous system leukaemia [Unknown]
  - Chloroma [Unknown]
  - Leukaemia recurrent [Unknown]

NARRATIVE: CASE EVENT DATE: 20190604
